FAERS Safety Report 17008387 (Version 2)
Quarter: 2019Q4

REPORT INFORMATION
  Report Type: Spontaneous
  Country: US (occurrence: US)
  Receive Date: 20191108
  Receipt Date: 20191128
  Transmission Date: 20200122
  Serious: Yes (Other)
  Sender: FDA-Public Use
  Company Number: US-009507513-1910USA017381

PATIENT
  Sex: Male

DRUGS (2)
  1. INVANZ [Suspect]
     Active Substance: ERTAPENEM SODIUM
     Indication: RAOULTELLA ORNITHINOLYTICA INFECTION
     Dosage: UNK
  2. CEFEPIME [Concomitant]
     Active Substance: CEFEPIME HYDROCHLORIDE
     Indication: RAOULTELLA ORNITHINOLYTICA INFECTION
     Dosage: UNK

REACTIONS (2)
  - Pathogen resistance [Not Recovered/Not Resolved]
  - Off label use [Unknown]
